FAERS Safety Report 9769718 (Version 2)
Quarter: 2013Q4

REPORT INFORMATION
  Report Type: Spontaneous
  Country: LY (occurrence: LY)
  Receive Date: 20131218
  Receipt Date: 20131227
  Transmission Date: 20140711
  Serious: No
  Sender: FDA-Public Use
  Company Number: LY-NOVOPROD-395007

PATIENT
  Age: 33 Year
  Sex: Male
  Weight: 104 kg

DRUGS (5)
  1. VICTOZA [Suspect]
     Indication: DIABETES MELLITUS INADEQUATE CONTROL
     Dosage: 1.8 MG, QD
     Route: 058
     Dates: start: 20130801, end: 20131120
  2. VICTOZA [Suspect]
     Indication: WEIGHT CONTROL
  3. TEGRETOL [Concomitant]
     Indication: PRODUCT USED FOR UNKNOWN INDICATION
     Dosage: 400 MG, QD
     Route: 065
     Dates: start: 2003
  4. SEROQUEL [Concomitant]
     Indication: PRODUCT USED FOR UNKNOWN INDICATION
     Dosage: UNK, BID
     Route: 065
     Dates: start: 2010
  5. DEPAKIN [Concomitant]
     Indication: PRODUCT USED FOR UNKNOWN INDICATION
     Dosage: UNK, QD
     Route: 065
     Dates: start: 2003

REACTIONS (2)
  - Schizophrenia [Recovered/Resolved]
  - Off label use [Recovered/Resolved]
